FAERS Safety Report 5313434-8 (Version None)
Quarter: 2007Q1

REPORT INFORMATION
  Report Type: 
  Country: None (occurrence: None)
  Receive Date: 20070130
  Receipt Date: 20060807
  Transmission Date: 20070707
  Serious: Yes (Hospitalization)
  Sender: FDA-Public Use
  Company Number: 146907USA

PATIENT
  Sex: Female

DRUGS (1)
  1. COPAXONE [Suspect]
     Indication: MULTIPLE SCLEROSIS
     Dosage: (20 MG), SUBCUTANEOUS
     Route: 058

REACTIONS (6)
  - BREAST PAIN [None]
  - HAEMATOMA [None]
  - INFECTION [None]
  - PNEUMONIA [None]
  - STREPTOCOCCAL INFECTION [None]
  - TONGUE ULCERATION [None]
